FAERS Safety Report 17692149 (Version 3)
Quarter: 2020Q2

REPORT INFORMATION
  Report Type: Spontaneous
  Country: US (occurrence: US)
  Receive Date: 20200422
  Receipt Date: 20200430
  Transmission Date: 20200714
  Serious: No
  Sender: FDA-Public Use
  Company Number: US-PFIZER INC-2020154343

PATIENT
  Age: 83 Year
  Sex: Male

DRUGS (1)
  1. CADUET [Suspect]
     Active Substance: AMLODIPINE BESYLATE\ATORVASTATIN CALCIUM
     Dosage: 1 DF, DAILY(5-40 MG, SIG: 1 PO Q DAY)
     Route: 048

REACTIONS (2)
  - Product dispensing issue [Unknown]
  - Impaired driving ability [Unknown]
